FAERS Safety Report 5343756-6 (Version None)
Quarter: 2007Q2

REPORT INFORMATION
  Report Type: 
  Country: None (occurrence: None)
  Receive Date: 20070604
  Receipt Date: 20070522
  Transmission Date: 20071010
  Serious: Yes (Other)
  Sender: FDA-Public Use
  Company Number: CO-AMGEN-US227229

PATIENT
  Sex: Female
  Weight: 60 kg

DRUGS (4)
  1. ENBREL [Suspect]
     Indication: PSORIASIS
     Route: 058
     Dates: start: 20061229
  2. SPIRONOLACTONE [Concomitant]
     Indication: DIURETIC THERAPY
  3. OMEPRAZOLE [Concomitant]
     Indication: ULCER
     Route: 048
  4. ENALAPRIL MALEATE [Concomitant]
     Indication: HYPERTENSION
     Route: 048

REACTIONS (3)
  - CONDITION AGGRAVATED [None]
  - HEPATIC MASS [None]
  - PSORIASIS [None]
